FAERS Safety Report 25776211 (Version 1)
Quarter: 2025Q3

REPORT INFORMATION
  Report Type: Spontaneous
  Country: US (occurrence: US)
  Receive Date: 20250909
  Receipt Date: 20250909
  Transmission Date: 20251021
  Serious: No
  Sender: DOMPE FARMACEUTICI
  Company Number: US-FARMAPROD-202502-0467

PATIENT
  Sex: Female

DRUGS (18)
  1. OXERVATE [Suspect]
     Active Substance: CENEGERMIN-BKBJ
     Indication: Neurotrophic keratopathy
     Route: 047
     Dates: start: 20250203
  2. PREDNISOLONE ACETATE [Concomitant]
     Active Substance: PREDNISOLONE ACETATE
  3. PROBIOTIC-10 [Concomitant]
  4. OMEGA-3 ACIDS [Concomitant]
     Active Substance: OMEGA-3 FATTY ACIDS
  5. VITAMIN C [Concomitant]
     Active Substance: ASCORBIC ACID
  6. COENZYME Q10 [Concomitant]
     Active Substance: DIETARY SUPPLEMENT\UBIDECARENONE
  7. VITAMIN D3 [Concomitant]
     Active Substance: CHOLECALCIFEROL
  8. ASPIRIN [Concomitant]
     Active Substance: ASPIRIN
  9. OMEPRAZOLE [Concomitant]
     Active Substance: OMEPRAZOLE
  10. ZETIA [Concomitant]
     Active Substance: EZETIMIBE
  11. CRESTOR [Concomitant]
     Active Substance: ROSUVASTATIN CALCIUM
  12. LOSARTAN POTASSIUM [Concomitant]
     Active Substance: LOSARTAN POTASSIUM
  13. RETAINE PM [Concomitant]
     Active Substance: MINERAL OIL\PETROLATUM
  14. IVIZIA [Concomitant]
     Active Substance: POVIDONE
  15. SYSTANE HYDRATION PF [Concomitant]
  16. REFRESH PLUS [Concomitant]
     Active Substance: CARBOXYMETHYLCELLULOSE SODIUM
  17. MIEBO [Concomitant]
     Active Substance: PERFLUOROHEXYLOCTANE
  18. LUTEIN [Concomitant]
     Active Substance: LUTEIN

REACTIONS (5)
  - Eye irritation [Unknown]
  - Eye pain [Unknown]
  - Blepharospasm [Unknown]
  - Sinus disorder [Unknown]
  - Lacrimation increased [Unknown]
